FAERS Safety Report 21733394 (Version 1)
Quarter: 2022Q4

REPORT INFORMATION
  Report Type: Spontaneous
  Country: US (occurrence: None)
  Receive Date: 20221214
  Receipt Date: 20221214
  Transmission Date: 20230113
  Serious: No
  Sender: FDA-Public Use
  Company Number: None

PATIENT
  Age: 66 Year
  Sex: Female

DRUGS (1)
  1. OXYCODONE [Suspect]
     Active Substance: OXYCODONE
     Dosage: FREQUENCY : 3 TIMES A DAY;?

REACTIONS (4)
  - Product substitution issue [None]
  - Suspected product contamination [None]
  - Suspected product quality issue [None]
  - Nonspecific reaction [None]

NARRATIVE: CASE EVENT DATE: 20221214
